FAERS Safety Report 6394033-6 (Version None)
Quarter: 2009Q4

REPORT INFORMATION
  Report Type: 
  Country: None (occurrence: None)
  Receive Date: 20091008
  Receipt Date: 20090928
  Transmission Date: 20100525
  Serious: Yes (Other)
  Sender: FDA-Public Use
  Company Number: PHEH2009US12405

PATIENT
  Sex: Male

DRUGS (3)
  1. GENTEAL PM LUBRICANT EYE OINTMENT [Suspect]
     Indication: DRY EYE
     Dosage: 3.5 MG, UNK
  2. COUMADIN [Concomitant]
  3. FLECAINIDE ACETATE [Concomitant]

REACTIONS (3)
  - FOREIGN BODY SENSATION IN EYES [None]
  - OCULAR HYPERAEMIA [None]
  - SURGERY [None]
